FAERS Safety Report 4346465-5 (Version None)
Quarter: 2004Q2

REPORT INFORMATION
  Report Type: 
  Country: None (occurrence: None)
  Receive Date: 20040426
  Receipt Date: 20030424
  Transmission Date: 20050107
  Serious: No
  Sender: FDA-Public Use
  Company Number: US-BRISTOL-MYERS SQUIBB COMPANY-12256053

PATIENT
  Age: 55 Year
  Sex: Female
  Weight: 117 kg

DRUGS (6)
  1. CARBOPLATIN [Suspect]
     Indication: BREAST CANCER METASTATIC
     Dosage: ADMINISTERED OVER 30 - 40 MINUTES INITIAL DOSE ON 30-DEC-2002
     Route: 042
     Dates: start: 20030320, end: 20030320
  2. TAXOL [Concomitant]
     Dosage: ADMINISTERED OVER 3 HOURS
     Route: 042
  3. DECADRON [Concomitant]
     Indication: PREMEDICATION
     Route: 042
  4. ZANTAC [Concomitant]
     Indication: PREMEDICATION
     Route: 042
  5. KYTRIL [Concomitant]
     Indication: PREMEDICATION
     Route: 042
  6. BENADRYL [Concomitant]
     Indication: PREMEDICATION
     Route: 042

REACTIONS (4)
  - ERYTHEMA [None]
  - FLUSHING [None]
  - NAUSEA [None]
  - VOMITING [None]
